FAERS Safety Report 13402623 (Version 8)
Quarter: 2018Q3

REPORT INFORMATION
  Report Type: Report from Study
  Country: US (occurrence: US)
  Receive Date: 20170404
  Receipt Date: 20180926
  Transmission Date: 20181010
  Serious: Yes (Hospitalization)
  Sender: FDA-Public Use
  Company Number: US-ACTELION-A-US2017-151793

PATIENT
  Age: 20 Year
  Sex: Female
  Weight: 81.63 kg

DRUGS (5)
  1. ADCIRCA [Concomitant]
     Active Substance: TADALAFIL
  2. ADEMPAS [Concomitant]
     Active Substance: RIOCIGUAT
  3. VELETRI [Suspect]
     Active Substance: EPOPROSTENOL
     Indication: PULMONARY ARTERIAL HYPERTENSION
     Dosage: 20.9 NG/KG, PER MIN
     Route: 042
  4. VELETRI [Suspect]
     Active Substance: EPOPROSTENOL
     Dosage: 19.7 NG/KG, PER MIN
     Route: 042
  5. OPSUMIT [Suspect]
     Active Substance: MACITENTAN
     Indication: PULMONARY ARTERIAL HYPERTENSION
     Dosage: 10 MG, QD
     Route: 048

REACTIONS (6)
  - Flushing [Unknown]
  - Muscle tightness [Unknown]
  - Pain in jaw [Unknown]
  - Rash [Unknown]
  - Device related infection [Unknown]
  - Catheter placement [Unknown]

NARRATIVE: CASE EVENT DATE: 20180803
